FAERS Safety Report 12473609 (Version 1)
Quarter: 2016Q2

REPORT INFORMATION
  Report Type: Spontaneous
  Country: US (occurrence: US)
  Receive Date: 20160616
  Receipt Date: 20160616
  Transmission Date: 20160815
  Serious: Yes (Other)
  Sender: FDA-Public Use
  Company Number: US-BAYER-2016-109707

PATIENT
  Age: 80 Year
  Sex: Female
  Weight: 45.35 kg

DRUGS (3)
  1. BAYER GENUINE ASPIRIN [Suspect]
     Active Substance: ASPIRIN
     Indication: ARTHRITIS
     Dosage: 10 TO 12 PILLS, QD
     Dates: start: 1973, end: 1976
  2. ALKA-SELTZER GOLD [Suspect]
     Active Substance: ANHYDROUS CITRIC ACID\POTASSIUM BICARBONATE\SODIUM BICARBONATE
     Indication: ARTHRITIS
     Dosage: 1 DF, ONCE
     Route: 048
     Dates: start: 20160602, end: 20160602
  3. ALKA-SELTZER GOLD [Suspect]
     Active Substance: ANHYDROUS CITRIC ACID\POTASSIUM BICARBONATE\SODIUM BICARBONATE
     Indication: ASTHENIA

REACTIONS (5)
  - Product use issue [None]
  - Gastric ulcer [Recovered/Resolved]
  - Product use issue [None]
  - Overdose [None]
  - Poor quality sleep [None]

NARRATIVE: CASE EVENT DATE: 1973
